FAERS Safety Report 5117053-8 (Version None)
Quarter: 2006Q3

REPORT INFORMATION
  Report Type: 
  Country: None (occurrence: None)
  Receive Date: 20060925
  Receipt Date: 20060912
  Transmission Date: 20061208
  Serious: Yes (Other)
  Sender: FDA-Public Use
  Company Number: 2006111270

PATIENT
  Age: 70 Year
  Sex: Female

DRUGS (5)
  1. DETRUSITOL SR (TOLTERODINE) [Suspect]
     Indication: POLLAKIURIA
     Dosage: 4 MG, ORAL
     Route: 048
     Dates: start: 20060704, end: 20060714
  2. PHENYTOIN [Concomitant]
  3. KETAS (IBUDILAST) [Concomitant]
  4. TEGRETOL (CARBMAZEPINE) [Concomitant]
  5. LIPITOR [Concomitant]

REACTIONS (2)
  - BLOOD PRESSURE INCREASED [None]
  - DIZZINESS [None]
